FAERS Safety Report 5504422-7 (Version None)
Quarter: 2007Q4

REPORT INFORMATION
  Report Type: 
  Country: None (occurrence: None)
  Receive Date: 20071101
  Receipt Date: 20071022
  Transmission Date: 20080405
  Serious: Yes (Other)
  Sender: FDA-Public Use
  Company Number: US-ABBOTT-07P-163-0421810-00

PATIENT

DRUGS (1)
  1. KALETRA [Suspect]
     Indication: DRUG USE FOR UNKNOWN INDICATION

REACTIONS (1)
  - HAEMORRHAGE INTRACRANIAL [None]
